FAERS Safety Report 9448291 (Version 3)
Quarter: 2013Q4

REPORT INFORMATION
  Report Type: Spontaneous
  Country: JP (occurrence: JP)
  Receive Date: 20130808
  Receipt Date: 20131223
  Transmission Date: 20140711
  Serious: Yes (Hospitalization)
  Sender: FDA-Public Use
  Company Number: JP-EISAI INC-E7389-04077-SPO-JP

PATIENT
  Age: 61 Year
  Sex: Female
  Weight: 52 kg

DRUGS (6)
  1. HALAVEN [Suspect]
     Indication: BREAST CANCER RECURRENT
     Dosage: 1.6 MG
     Route: 041
     Dates: start: 20130212, end: 20130212
  2. HALAVEN [Suspect]
     Indication: METASTASES TO BONE
     Dosage: 1.4 MG
     Route: 041
     Dates: start: 20130225, end: 2013
  3. HALAVEN [Suspect]
     Indication: METASTASES TO LIVER
     Dosage: 1.6 MG
     Route: 041
     Dates: start: 20130430, end: 20130527
  4. ZOMETA [Concomitant]
     Indication: METASTASES TO BONE
     Dosage: 4 MG
     Route: 041
     Dates: start: 20130205
  5. HYSRON [Concomitant]
     Indication: METASTASES TO BONE
     Route: 048
     Dates: start: 20130225, end: 20130527
  6. HYSRON [Concomitant]
     Indication: METASTASES TO LIVER

REACTIONS (3)
  - Interstitial lung disease [Recovering/Resolving]
  - Hypoaesthesia [Recovering/Resolving]
  - Malaise [Recovering/Resolving]
